FAERS Safety Report 10227802 (Version 1)
Quarter: 2014Q2

REPORT INFORMATION
  Report Type: Spontaneous
  Country: US (occurrence: US)
  Receive Date: 20140610
  Receipt Date: 20140610
  Transmission Date: 20141212
  Serious: No
  Sender: FDA-Public Use
  Company Number: US-BAYER-2014-086476

PATIENT
  Age: 21 Year
  Sex: Female
  Weight: 81.63 kg

DRUGS (2)
  1. ALEVE TABLET [Suspect]
     Indication: HEADACHE
     Route: 048
  2. ALEVE TABLET [Suspect]
     Indication: HEADACHE
     Dosage: 5 DF,  WITHIN 3 HOURS
     Dates: start: 20140608, end: 20140608

REACTIONS (2)
  - Extra dose administered [None]
  - Drug ineffective [None]
